FAERS Safety Report 5007680-0 (Version None)
Quarter: 2006Q2

REPORT INFORMATION
  Report Type: 
  Country: None (occurrence: None)
  Receive Date: 20060517
  Receipt Date: 20060504
  Transmission Date: 20061013
  Serious: Yes (Other)
  Sender: FDA-Public Use
  Company Number: 2006061501

PATIENT
  Sex: Male

DRUGS (1)
  1. FELDENE [Suspect]
     Indication: RHEUMATOID ARTHRITIS
     Dosage: 20 MG (20 MG, OD INTERVAL: INTERMITTENTLY), ORAL
     Route: 048
     Dates: start: 19840101

REACTIONS (3)
  - BLOOD PRESSURE SYSTOLIC INCREASED [None]
  - BONE MARROW FAILURE [None]
  - FURUNCLE [None]
